FAERS Safety Report 5481705-0 (Version None)
Quarter: 2007Q3

REPORT INFORMATION
  Report Type: 
  Country: None (occurrence: None)
  Receive Date: 20070917
  Receipt Date: 20070226
  Transmission Date: 20080115
  Serious: Yes (Other)
  Sender: FDA-Public Use
  Company Number: S07-USA-00893-01

PATIENT
  Age: 16 Year
  Sex: Female

DRUGS (6)
  1. CELEXA [Suspect]
     Indication: DEPRESSION
     Dosage: 40 MG QD PO
     Route: 048
  2. CLARAVIS [Suspect]
     Indication: ACNE
     Dosage: 80 MG QD
     Dates: start: 20061201, end: 20070101
  3. ADVAIR (FLUTICASONE) [Concomitant]
  4. ALBUTEROL [Concomitant]
  5. LEVORA 0.15/30-21 [Concomitant]
  6. CLARAVIS [Suspect]
     Indication: ACNE
     Dosage: 40 MG QD
     Dates: start: 20070101, end: 20070211

REACTIONS (5)
  - CHEST PAIN [None]
  - DEPRESSION [None]
  - DYSPNOEA [None]
  - INTENTIONAL OVERDOSE [None]
  - SUICIDE ATTEMPT [None]
